FAERS Safety Report 15876765 (Version 2)
Quarter: 2019Q1

REPORT INFORMATION
  Report Type: Spontaneous
  Country: US (occurrence: US)
  Receive Date: 20190127
  Receipt Date: 20190205
  Transmission Date: 20190417
  Serious: No
  Sender: FDA-Public Use
  Company Number: US-AMGEN-USASP2019010826

PATIENT
  Age: 44 Year
  Sex: Male

DRUGS (6)
  1. RENVELA [Concomitant]
     Active Substance: SEVELAMER CARBONATE
  2. ATORVASTATIN [Concomitant]
     Active Substance: ATORVASTATIN
  3. COLESTIPOL [Concomitant]
     Active Substance: COLESTIPOL
  4. SENSIPAR [Suspect]
     Active Substance: CINACALCET HYDROCHLORIDE
     Indication: HYPERPARATHYROIDISM SECONDARY
     Dosage: 30 MG, UNK
     Route: 065
     Dates: start: 201807
  5. SODIUM BICARBONATE. [Concomitant]
     Active Substance: SODIUM BICARBONATE
  6. NEPHRO-VITE [Concomitant]

REACTIONS (1)
  - Dysgeusia [Unknown]
